FAERS Safety Report 6163688-3 (Version None)
Quarter: 2009Q2

REPORT INFORMATION
  Report Type: 
  Country: None (occurrence: None)
  Receive Date: 20090420
  Receipt Date: 20081114
  Transmission Date: 20091009
  Serious: Yes (Hospitalization)
  Sender: FDA-Public Use
  Company Number: SPV1-2008-02376

PATIENT
  Age: 38 Year
  Sex: Female

DRUGS (7)
  1. 476 (MESALAZINE/MESALAMINE)(476 (MESALAZINE/MESALAMINE)) TABLET [Suspect]
     Indication: COLITIS ULCERATIVE
     Dosage: 2.4 G, 1X/DAY:QD, ORAL
     Route: 048
     Dates: start: 20080306
  2. PROZAC [Concomitant]
  3. ZYRTEC [Concomitant]
  4. LEVONORGESTREL W/ETHINYLESTRADIOL (ETHINYLESTRADIOL, LEVONORGESTREL) [Concomitant]
  5. VICODIN [Concomitant]
  6. FIORICET [Concomitant]
  7. ACETAMINOPHEN [Concomitant]

REACTIONS (1)
  - BACK PAIN [None]
